FAERS Safety Report 24911185 (Version 1)
Quarter: 2025Q1

REPORT INFORMATION
  Report Type: Spontaneous
  Country: US (occurrence: None)
  Receive Date: 20250131
  Receipt Date: 20250131
  Transmission Date: 20250408
  Serious: Yes (Disabling)
  Sender: FDA-CTU
  Company Number: None

PATIENT
  Age: 67 Year
  Sex: Male
  Weight: 70.2 kg

DRUGS (11)
  1. NEXLIZET [Suspect]
     Active Substance: BEMPEDOIC ACID\EZETIMIBE
     Indication: Low density lipoprotein increased
     Dosage: OTHER QUANTITY : 90 TABLET(S);?FREQUENCY : DAILY;?
     Route: 048
     Dates: start: 20241224, end: 20250122
  2. NEXLIZET [Suspect]
     Active Substance: BEMPEDOIC ACID\EZETIMIBE
     Indication: Type 1 diabetes mellitus
  3. NEXLIZET [Suspect]
     Active Substance: BEMPEDOIC ACID\EZETIMIBE
     Indication: Diabetes prophylaxis
  4. Medtronic Insulin pump with CGM [Concomitant]
  5. SILDENAFIL [Concomitant]
     Active Substance: SILDENAFIL
  6. Senior male multi-vitamin [Concomitant]
  7. LUTEIN [Concomitant]
     Active Substance: LUTEIN
  8. flavonoid [Concomitant]
  9. ARGININE [Concomitant]
     Active Substance: ARGININE
  10. COENZYME Q10 [Concomitant]
     Active Substance: DIETARY SUPPLEMENT\UBIDECARENONE
  11. b12 [Concomitant]

REACTIONS (14)
  - Neck pain [None]
  - Spinal pain [None]
  - Spinal pain [None]
  - Muscle spasms [None]
  - Muscle spasms [None]
  - Arthralgia [None]
  - Fatigue [None]
  - Myalgia [None]
  - Chest pain [None]
  - Diarrhoea [None]
  - Urine abnormality [None]
  - Micturition urgency [None]
  - Pollakiuria [None]
  - Renal pain [None]

NARRATIVE: CASE EVENT DATE: 20241227
